FAERS Safety Report 8286363-8 (Version None)
Quarter: 2012Q2

REPORT INFORMATION
  Report Type: 
  Country: None (occurrence: None)
  Receive Date: 20120411
  Receipt Date: 20120411
  Transmission Date: 20120825
  Serious: Yes (Hospitalization)
  Sender: FDA-Public Use
  Company Number: None

PATIENT
  Age: 63 Year
  Sex: Male
  Weight: 100.6985 kg

DRUGS (1)
  1. FOSINOPRIL SODIUM [Suspect]
     Indication: BLOOD PRESSURE INCREASED
     Dosage: 40 MG 1 DAILY MOUTH
     Route: 048
     Dates: start: 20111125, end: 20120123

REACTIONS (2)
  - ANGIOEDEMA [None]
  - HYPOAESTHESIA [None]
